FAERS Safety Report 10901971 (Version 4)
Quarter: 2015Q4

REPORT INFORMATION
  Report Type: Spontaneous
  Country: US (occurrence: US)
  Receive Date: 20150310
  Receipt Date: 20151002
  Transmission Date: 20160304
  Serious: No
  Sender: FDA-Public Use
  Company Number: US-GLAXOSMITHKLINE-US2015023116

PATIENT
  Age: 67 Year
  Sex: Female

DRUGS (11)
  1. VENTOLIN HFA [Concomitant]
     Active Substance: ALBUTEROL SULFATE
  2. PROVENTIL [Concomitant]
     Active Substance: ALBUTEROL
  3. HYDROCHLOROTHIAZIDE. [Concomitant]
     Active Substance: HYDROCHLOROTHIAZIDE
  4. NYSTATIN. [Concomitant]
     Active Substance: NYSTATIN
  5. ALBUTEROL NEBULISER SOLUTION [Concomitant]
     Active Substance: ALBUTEROL SULFATE
  6. BREO ELLIPTA [Suspect]
     Active Substance: FLUTICASONE FUROATE\VILANTEROL TRIFENATATE
     Indication: CHRONIC OBSTRUCTIVE PULMONARY DISEASE
     Dosage: 1 PUFF(S), 1D
     Route: 055
  7. LORTAB (LORATADINE) [Concomitant]
  8. ADVAIR DISKUS [Suspect]
     Active Substance: FLUTICASONE PROPIONATE\SALMETEROL XINAFOATE
     Indication: CHRONIC OBSTRUCTIVE PULMONARY DISEASE
     Dosage: 1 PUFF(S), BID
     Route: 055
     Dates: start: 2008, end: 201401
  9. BREO ELLIPTA [Suspect]
     Active Substance: FLUTICASONE FUROATE\VILANTEROL TRIFENATATE
     Dosage: 1 PUFF(S), QD
     Route: 055
     Dates: start: 201401
  10. PRIMIDONE. [Concomitant]
     Active Substance: PRIMIDONE
  11. MUCINEX [Concomitant]
     Active Substance: GUAIFENESIN

REACTIONS (18)
  - Denture wearer [Not Recovered/Not Resolved]
  - Dry mouth [Recovered/Resolved]
  - Ageusia [Recovering/Resolving]
  - Wheezing [Unknown]
  - Drug ineffective [Unknown]
  - Malaise [Recovering/Resolving]
  - Chest discomfort [Recovering/Resolving]
  - Oropharyngeal discomfort [Recovered/Resolved]
  - Gingival disorder [Not Recovered/Not Resolved]
  - Chronic obstructive pulmonary disease [Unknown]
  - Tooth extraction [Recovered/Resolved]
  - Oral discomfort [Recovered/Resolved]
  - Pharyngeal inflammation [Recovered/Resolved]
  - Dental care [Recovered/Resolved]
  - Candida infection [Unknown]
  - Dyspnoea [Recovering/Resolving]
  - Oral discomfort [Not Recovered/Not Resolved]
  - Drug effect decreased [Unknown]

NARRATIVE: CASE EVENT DATE: 201503
